FAERS Safety Report 6732329-6 (Version None)
Quarter: 2010Q2

REPORT INFORMATION
  Report Type: 
  Country: None (occurrence: None)
  Receive Date: 20100519
  Receipt Date: 20100512
  Transmission Date: 20101027
  Serious: Yes (Other)
  Sender: FDA-Public Use
  Company Number: BR-JNJFOC-20100505222

PATIENT
  Age: 69 Year
  Sex: Male

DRUGS (2)
  1. TYLEX [Suspect]
     Indication: ANALGESIC THERAPY
     Route: 065
  2. CHLORPROPAMIDE [Concomitant]
     Indication: HYPOGLYCAEMIA

REACTIONS (1)
  - PANCREATITIS ACUTE [None]
